FAERS Safety Report 6429215-8 (Version None)
Quarter: 2009Q4

REPORT INFORMATION
  Report Type: 
  Country: None (occurrence: None)
  Receive Date: 20091105
  Receipt Date: 20091022
  Transmission Date: 20100525
  Serious: Yes (Other)
  Sender: FDA-Public Use
  Company Number: PHHY2009US47572

PATIENT
  Age: 70 Year
  Sex: Female

DRUGS (1)
  1. ESTRADERM [Suspect]

REACTIONS (4)
  - ABDOMINAL PAIN [None]
  - ENDOMETRIAL SARCOMA [None]
  - ENDOMETRIOSIS [None]
  - POLLAKIURIA [None]
